FAERS Safety Report 8625088-3 (Version None)
Quarter: 2012Q3

REPORT INFORMATION
  Report Type: 
  Country: None (occurrence: None)
  Receive Date: 20120827
  Receipt Date: 20120821
  Transmission Date: 20120928
  Serious: Yes (Death)
  Sender: FDA-Public Use
  Company Number: US-GLAXOSMITHKLINE-A0982489A

PATIENT
  Age: 59 Year
  Sex: Male

DRUGS (2)
  1. VOTRIENT [Suspect]
     Indication: MALIGNANT SOFT TISSUE NEOPLASM
     Dosage: 200MG PER DAY
     Route: 048
     Dates: start: 20120525, end: 20120618
  2. PAXIL [Concomitant]

REACTIONS (1)
  - LIPOSARCOMA [None]
